FAERS Safety Report 12039913 (Version 5)
Quarter: 2016Q3

REPORT INFORMATION
  Report Type: Spontaneous
  Country: FR (occurrence: FR)
  Receive Date: 20160208
  Receipt Date: 20160712
  Transmission Date: 20161109
  Serious: Yes (Other)
  Sender: FDA-Public Use
  Company Number: FR-JNJFOC-20160200222

PATIENT
  Age: 57 Year
  Sex: Male
  Weight: 72 kg

DRUGS (2)
  1. ZELITREX [Suspect]
     Active Substance: VALACYCLOVIR HYDROCHLORIDE
     Indication: HERPES ZOSTER
     Route: 048
     Dates: start: 2014, end: 2015
  2. PREZISTA [Suspect]
     Active Substance: DARUNAVIR ETHANOLATE
     Indication: HIV INFECTION
     Route: 048
     Dates: start: 20140910, end: 20150626

REACTIONS (9)
  - Pollakiuria [Unknown]
  - Somnolence [Unknown]
  - Sleep apnoea syndrome [Recovering/Resolving]
  - Herpes zoster [Recovered/Resolved]
  - Suffocation feeling [Unknown]
  - Weight increased [Unknown]
  - Headache [Unknown]
  - Nightmare [Recovered/Resolved]
  - Migraine [Unknown]

NARRATIVE: CASE EVENT DATE: 201409
